FAERS Safety Report 6537119-5 (Version None)
Quarter: 2010Q1

REPORT INFORMATION
  Report Type: 
  Country: None (occurrence: None)
  Receive Date: 20100114
  Receipt Date: 20100108
  Transmission Date: 20100710
  Serious: Yes (Hospitalization)
  Sender: FDA-Public Use
  Company Number: CH-ELI_LILLY_AND_COMPANY-CH201001001418

PATIENT
  Sex: Male

DRUGS (2)
  1. HUMALOG MIX 75/25 [Suspect]
     Dosage: UNK, UNK
  2. HUMALOG MIX 50/50 [Suspect]
     Dosage: UNK, UNK

REACTIONS (3)
  - DRUG SPECIFIC ANTIBODY PRESENT [None]
  - HYPERGLYCAEMIA [None]
  - HYPOGLYCAEMIA [None]
